FAERS Safety Report 13426948 (Version 1)
Quarter: 2017Q2

REPORT INFORMATION
  Report Type: Spontaneous
  Country: US (occurrence: US)
  Receive Date: 20170411
  Receipt Date: 20170411
  Transmission Date: 20170830
  Serious: Yes (Death, Life-Threatening, Hospitalization)
  Sender: FDA-Public Use
  Company Number: None

PATIENT
  Age: 72 Year
  Sex: Female
  Weight: 111 kg

DRUGS (1)
  1. BACITRACIN 50000 UNIT VIA [Suspect]
     Active Substance: BACITRACIN
     Indication: IRRIGATION THERAPY
     Dosage: ?          OTHER FREQUENCY:ONCE;OTHER ROUTE:IRRIGATION TO POCKET FOR PACEMAKER?
     Dates: start: 20170322

REACTIONS (4)
  - Cardio-respiratory arrest [None]
  - Irritability [None]
  - Burning sensation [None]
  - Bradycardia [None]

NARRATIVE: CASE EVENT DATE: 20170322
